FAERS Safety Report 10926384 (Version 1)
Quarter: 2015Q1

REPORT INFORMATION
  Report Type: Spontaneous
  Country: US (occurrence: None)
  Receive Date: 20150317
  Receipt Date: 20150317
  Transmission Date: 20150721
  Serious: No
  Sender: FDA-Public Use
  Company Number: None

PATIENT
  Age: 13 Year
  Sex: Male
  Weight: 74.84 kg

DRUGS (3)
  1. QUILLIVANT XR [Concomitant]
     Active Substance: METHYLPHENIDATE HYDROCHLORIDE
  2. SULFMETHOXAZOLE 300 ML [Suspect]
     Active Substance: SULFAMETHOXAZOLE
     Indication: PARONYCHIA
     Dates: start: 20150310, end: 20150316
  3. MELATONIN [Concomitant]
     Active Substance: MELATONIN

REACTIONS (3)
  - Rash [None]
  - Viral infection [None]
  - Vomiting [None]

NARRATIVE: CASE EVENT DATE: 20150316
